FAERS Safety Report 15308454 (Version 2)
Quarter: 2018Q3

REPORT INFORMATION
  Report Type: Not Available
  Country: US (occurrence: US)
  Receive Date: 20180822
  Receipt Date: 20180906
  Transmission Date: 20181010
  Serious: Yes (Hospitalization)
  Sender: FDA-Public Use
  Company Number: US-NEUROCRINE BIOSCIENCES INC.-2018NBI02460

PATIENT
  Sex: Female

DRUGS (15)
  1. INGREZZA [Suspect]
     Active Substance: VALBENAZINE
     Indication: TARDIVE DYSKINESIA
     Route: 048
     Dates: start: 20171021, end: 20171027
  2. INGREZZA [Suspect]
     Active Substance: VALBENAZINE
     Route: 048
     Dates: start: 20171028
  3. ASPIRIN. [Concomitant]
     Active Substance: ASPIRIN
  4. SYNTHROID [Concomitant]
     Active Substance: LEVOTHYROXINE SODIUM
  5. THORAZINE [Concomitant]
     Active Substance: CHLORPROMAZINE
     Dosage: (QPM)
  6. TOPROL XL [Concomitant]
     Active Substance: METOPROLOL SUCCINATE
  7. MIRALAX [Concomitant]
     Active Substance: POLYETHYLENE GLYCOL 3350
  8. VALTREX [Concomitant]
     Active Substance: VALACYCLOVIR HYDROCHLORIDE
  9. SEROQUEL [Concomitant]
     Active Substance: QUETIAPINE FUMARATE
     Dosage: 300 MG IN THE MORNING; 400 MG AT NIGHT
  10. CHLORPROMAZINE. [Concomitant]
     Active Substance: CHLORPROMAZINE
  11. SIMVASTATIN. [Concomitant]
     Active Substance: SIMVASTATIN
  12. CELEBREX [Concomitant]
     Active Substance: CELECOXIB
  13. DEPAKOTE [Concomitant]
     Active Substance: DIVALPROEX SODIUM
     Dosage: AT BEDTIME
  14. KLONOPIN [Concomitant]
     Active Substance: CLONAZEPAM
  15. PRILOSEC [Concomitant]
     Active Substance: OMEPRAZOLE MAGNESIUM

REACTIONS (1)
  - Urinary tract infection [Recovered/Resolved]
